FAERS Safety Report 20672031 (Version 1)
Quarter: 2022Q2

REPORT INFORMATION
  Report Type: Spontaneous
  Country: DE (occurrence: DE)
  Receive Date: 20220405
  Receipt Date: 20220405
  Transmission Date: 20220721
  Serious: Yes (Hospitalization)
  Sender: FDA-Public Use
  Company Number: DE-NOVARTISPH-NVSC2022DE074900

PATIENT
  Sex: Female

DRUGS (4)
  1. DIOVAN [Suspect]
     Active Substance: VALSARTAN
     Indication: Hypertension
     Dosage: 120 MG, QD
     Route: 065
  2. DIOVAN [Suspect]
     Active Substance: VALSARTAN
     Dosage: 160 MG, QD
     Route: 065
  3. DIOVAN [Suspect]
     Active Substance: VALSARTAN
     Dosage: 80 MG, BID
     Route: 065
  4. IVABRADINE [Suspect]
     Active Substance: IVABRADINE
     Indication: Product used for unknown indication
     Dosage: UNK, QD
     Route: 065

REACTIONS (6)
  - Blood pressure abnormal [Unknown]
  - Myalgia [Unknown]
  - Heart rate decreased [Unknown]
  - Gait disturbance [Unknown]
  - Hypotension [Unknown]
  - Incorrect dose administered [Unknown]
